FAERS Safety Report 8083715-6 (Version None)
Quarter: 2012Q1

REPORT INFORMATION
  Report Type: 
  Country: None (occurrence: None)
  Receive Date: 20120127
  Receipt Date: 20110304
  Transmission Date: 20120608
  Serious: No
  Sender: FDA-Public Use
  Company Number: US-ABBOTT-11P-163-0709519-00

PATIENT
  Age: 38 Year
  Sex: Female

DRUGS (10)
  1. FOLIC ACID [Concomitant]
     Indication: PRODUCT USED FOR UNKNOWN INDICATION
  2. KEFLEX [Concomitant]
     Indication: PHARYNGITIS STREPTOCOCCAL
  3. NEXIUM [Concomitant]
     Indication: PEPTIC ULCER
  4. COUMADIN [Concomitant]
     Indication: DEEP VEIN THROMBOSIS
  5. HUMIRA [Suspect]
     Indication: RHEUMATOID ARTHRITIS
     Dates: start: 20110204
  6. METHOTREXATE [Concomitant]
     Indication: RHEUMATOID ARTHRITIS
     Dosage: 5 TABLETS
  7. MOBIC [Concomitant]
     Indication: ARTHRALGIA
  8. LORITAB [Concomitant]
     Indication: ARTHRALGIA
  9. ESTROGENS CONJUGATED [Concomitant]
     Indication: HORMONE LEVEL ABNORMAL
     Route: 067
  10. BENTYLIN INHALER [Concomitant]
     Indication: BRONCHITIS
     Dosage: 1-2 PUFFS 1 TIME DAILY

REACTIONS (1)
  - PHARYNGITIS STREPTOCOCCAL [None]
